FAERS Safety Report 9763360 (Version 1)
Quarter: 2013Q4

REPORT INFORMATION
  Report Type: Spontaneous
  Country: US (occurrence: US)
  Receive Date: 20131216
  Receipt Date: 20131216
  Transmission Date: 20140711
  Serious: No
  Sender: FDA-Public Use
  Company Number: US-BIOGENIDEC-2013BI106146

PATIENT
  Age: 51 Year
  Sex: Female
  Weight: 52 kg

DRUGS (11)
  1. TECFIDERA [Suspect]
     Indication: PRODUCT USED FOR UNKNOWN INDICATION
     Route: 048
  2. TECFIDERA [Suspect]
     Indication: PRODUCT USED FOR UNKNOWN INDICATION
     Route: 048
  3. KLONOPIN [Concomitant]
  4. VITAMIN D [Concomitant]
  5. VITAMIN B12 [Concomitant]
  6. CALCIUM AND MAG [Concomitant]
  7. CLARITIN [Concomitant]
  8. FISH OIL [Concomitant]
  9. ASPIRIN [Concomitant]
  10. PRILOSEC [Concomitant]
  11. PANTOPRAZOLE [Concomitant]

REACTIONS (1)
  - Hepatic enzyme increased [Unknown]
